FAERS Safety Report 16812452 (Version 1)
Quarter: 2019Q3

REPORT INFORMATION
  Report Type: Spontaneous
  Country: US (occurrence: US)
  Receive Date: 20190916
  Receipt Date: 20190916
  Transmission Date: 20191005
  Serious: Yes (Hospitalization)
  Sender: FDA-Public Use
  Company Number: US-JNJFOC-20190914221

PATIENT
  Age: 40 Year
  Sex: Male

DRUGS (1)
  1. INVEGA SUSTENNA [Suspect]
     Active Substance: PALIPERIDONE PALMITATE
     Indication: SCHIZOPHRENIA
     Route: 030

REACTIONS (4)
  - Therapeutic product effect decreased [Unknown]
  - Off label use [Unknown]
  - Schizophrenia [Unknown]
  - Inappropriate schedule of product administration [Unknown]
